FAERS Safety Report 15411714 (Version 3)
Quarter: 2018Q4

REPORT INFORMATION
  Report Type: Report from Study
  Country: US (occurrence: US)
  Receive Date: 20180921
  Receipt Date: 20181115
  Transmission Date: 20190204
  Serious: Yes (Death, Hospitalization)
  Sender: FDA-Public Use
  Company Number: US-ROCHE-2164402

PATIENT
  Age: 68 Year
  Sex: Female
  Weight: 48.4 kg

DRUGS (2)
  1. ATEZOLIZUMAB. [Suspect]
     Active Substance: ATEZOLIZUMAB
     Indication: CHOLANGIOCARCINOMA
     Dosage: 07/JUN/2018, MOST RECENT DOSE PRIOR TO DUODENAL OBSTRUCTION?19/JUN/2018, MOST RECENT DOSE PRIOR TO A
     Route: 042
     Dates: start: 20180524
  2. ATEZOLIZUMAB. [Suspect]
     Active Substance: ATEZOLIZUMAB
     Route: 042
     Dates: start: 20180609, end: 20180703

REACTIONS (6)
  - Bile duct obstruction [Recovered/Resolved]
  - Duodenal obstruction [Recovered/Resolved with Sequelae]
  - Abdominal pain [Recovered/Resolved]
  - Death [Fatal]
  - Biliary colic [Recovered/Resolved]
  - Vomiting [Recovered/Resolved]

NARRATIVE: CASE EVENT DATE: 20180626
